FAERS Safety Report 5523210-9 (Version None)
Quarter: 2007Q4

REPORT INFORMATION
  Report Type: 
  Country: None (occurrence: None)
  Receive Date: 20071116
  Receipt Date: 20071116
  Transmission Date: 20080405
  Serious: No
  Sender: FDA-Public Use
  Company Number: None

PATIENT
  Age: 66 Year
  Sex: Female
  Weight: 56.6996 kg

DRUGS (6)
  1. CLOBETASOL PROPIONATE [Suspect]
     Indication: LATEX ALLERGY
     Dosage: TOP
     Route: 061
     Dates: start: 20070227, end: 20070301
  2. PREDNISONE TAB [Concomitant]
  3. HYDROCORTISONE [Concomitant]
  4. NEXIUM [Concomitant]
  5. AMITRYPTYLENE [Concomitant]
  6. SYNTHROID [Concomitant]

REACTIONS (9)
  - ASTHENIA [None]
  - BURNING SENSATION [None]
  - DYSSTASIA [None]
  - ERYTHEMA [None]
  - GAIT DISTURBANCE [None]
  - JOINT SWELLING [None]
  - PAIN IN EXTREMITY [None]
  - SKIN DISCOLOURATION [None]
  - SUICIDAL IDEATION [None]
